FAERS Safety Report 8223814-9 (Version None)
Quarter: 2012Q1

REPORT INFORMATION
  Report Type: 
  Country: None (occurrence: None)
  Receive Date: 20120321
  Receipt Date: 20120321
  Transmission Date: 20120608
  Serious: Yes (Other)
  Sender: FDA-Public Use
  Company Number: None

PATIENT
  Age: 2 Year
  Sex: Female
  Weight: 12.7 kg

DRUGS (2)
  1. SINGULAIR [Suspect]
     Indication: MULTIPLE ALLERGIES
     Dosage: 1, 4MG TABLET
     Route: 048
     Dates: start: 20110915, end: 20110916
  2. SINGULAIR [Suspect]

REACTIONS (7)
  - ABNORMAL BEHAVIOUR [None]
  - FEAR [None]
  - IRRITABILITY [None]
  - INSOMNIA [None]
  - AGITATION [None]
  - CRYING [None]
  - ANGER [None]
